FAERS Safety Report 8019952-6 (Version None)
Quarter: 2012Q1

REPORT INFORMATION
  Report Type: 
  Country: None (occurrence: None)
  Receive Date: 20120103
  Receipt Date: 20111223
  Transmission Date: 20120608
  Serious: Yes (Other)
  Sender: FDA-Public Use
  Company Number: US-B.I. PHARMACEUTICALS,INC./RIDGEFIELD-2011-EU-01322GD

PATIENT
  Age: 40 Year
  Sex: Male
  Weight: 107 kg

DRUGS (17)
  1. TAMSULOSIN HCL [Suspect]
  2. MELOXICAM [Suspect]
  3. CARISOPRODOL [Concomitant]
  4. KETAMINE HCL [Concomitant]
     Indication: INDUCTION OF ANAESTHESIA
  5. MIDAZOLAM [Concomitant]
     Indication: PREMEDICATION
     Dosage: 2 MG
  6. SUFENTANIL CITRATE [Concomitant]
     Indication: INDUCTION AND MAINTENANCE OF ANAESTHESIA
  7. VECURONIUM BROMIDE [Concomitant]
     Indication: INDUCTION OF ANAESTHESIA
  8. LOSARTAN POTASSIUM [Suspect]
  9. HYDROCODONE BITARTRATE AND ACETAMINOPHEN [Concomitant]
  10. GABAPENTIN [Concomitant]
     Indication: PREMEDICATION
     Dosage: 800 MG
  11. PROPOFOL [Concomitant]
     Indication: INDUCTION OF ANAESTHESIA
  12. ISOFLURANE [Concomitant]
     Indication: MAINTENANCE OF ANAESTHESIA
  13. ALBUMIN (HUMAN) [Concomitant]
  14. LIDOCAINE [Concomitant]
     Indication: MAINTENANCE OF ANAESTHESIA
  15. DEXMEDETOMIDINE HYDROCHLORIDE [Suspect]
     Indication: MAINTENANCE OF ANAESTHESIA
     Dosage: 0.5 MCG/KG/H
  16. GABAPENTIN [Concomitant]
     Dosage: 800 MG
  17. RINGER'S [Concomitant]

REACTIONS (3)
  - HYPOTENSION [None]
  - TACHYCARDIA [None]
  - POLYURIA [None]
